FAERS Safety Report 15016001 (Version 1)
Quarter: 2018Q2

REPORT INFORMATION
  Report Type: Spontaneous
  Country: CH (occurrence: CH)
  Receive Date: 20180615
  Receipt Date: 20180615
  Transmission Date: 20180711
  Serious: Yes (Life-Threatening, Hospitalization)
  Sender: FDA-Public Use
  Company Number: CH-JNJFOC-20180613433

PATIENT
  Age: 27 Year
  Sex: Male
  Weight: 74 kg

DRUGS (6)
  1. XARELTO [Suspect]
     Active Substance: RIVAROXABAN
     Indication: VENOUS THROMBOSIS
     Route: 048
     Dates: start: 20180423, end: 20180514
  2. HEPARIN [Suspect]
     Active Substance: HEPARIN SODIUM
     Indication: VENOUS THROMBOSIS
     Route: 041
  3. HEPARIN [Suspect]
     Active Substance: HEPARIN SODIUM
     Indication: VENOUS THROMBOSIS
     Dosage: CONTINUOUS
     Route: 041
  4. ATROPINE SULFATE. [Concomitant]
     Active Substance: ATROPINE SULFATE
     Indication: BRADYCARDIA
     Route: 040
  5. ULTRAVIST [Concomitant]
     Active Substance: IOPROMIDE
     Route: 040
  6. DORMICUM [Concomitant]
     Route: 048

REACTIONS (2)
  - Procedural headache [Recovering/Resolving]
  - Subarachnoid haemorrhage [Recovering/Resolving]

NARRATIVE: CASE EVENT DATE: 20180514
